FAERS Safety Report 5679884-5 (Version None)
Quarter: 2008Q1

REPORT INFORMATION
  Report Type: 
  Country: None (occurrence: None)
  Receive Date: 20080321
  Receipt Date: 20080220
  Transmission Date: 20080703
  Serious: Yes (Hospitalization)
  Sender: FDA-Public Use
  Company Number: 2008S1002874

PATIENT
  Age: 35 Year
  Sex: Male

DRUGS (3)
  1. BACLOFEN [Suspect]
     Dosage: 100 MG; ONCE ORAL, 100 MG; ORAL; ONCE
     Route: 048
  2. TEMAZEPAM [Suspect]
     Dosage: ORAL, ORAL
     Route: 048
  3. NAPROXEN [Suspect]
     Dosage: 5 GM; ONCE ORAL, 5 GM; ORAL; ONCE
     Route: 048

REACTIONS (2)
  - OVERDOSE [None]
  - TACHYCARDIA [None]
